FAERS Safety Report 6441849-3 (Version None)
Quarter: 2009Q4

REPORT INFORMATION
  Report Type: 
  Country: None (occurrence: None)
  Receive Date: 20091116
  Receipt Date: 20091104
  Transmission Date: 20100525
  Serious: Yes (Other)
  Sender: FDA-Public Use
  Company Number: BR-PFIZER INC-2009245868

PATIENT
  Age: 11 Year
  Sex: Male
  Weight: 40 kg

DRUGS (2)
  1. GEODON [Suspect]
     Indication: PSYCHOMOTOR HYPERACTIVITY
     Dosage: 40 MG, UNK
     Route: 048
  2. GEODON [Suspect]
     Indication: NERVOUSNESS

REACTIONS (8)
  - AGITATION [None]
  - BLOOD TEST ABNORMAL [None]
  - BRONCHITIS [None]
  - BRONCHOSPASM [None]
  - DYSPNOEA [None]
  - PYREXIA [None]
  - SNEEZING [None]
  - SNORING [None]
